FAERS Safety Report 9440567 (Version 1)
Quarter: 2013Q3

REPORT INFORMATION
  Report Type: Spontaneous
  Country: US (occurrence: US)
  Receive Date: 20130805
  Receipt Date: 20130805
  Transmission Date: 20140515
  Serious: Yes (Other)
  Sender: FDA-Public Use
  Company Number: US-TEVA-422691USA

PATIENT
  Age: 27 Year
  Sex: Female
  Weight: 63.56 kg

DRUGS (2)
  1. PARAGARD 380A [Suspect]
     Indication: CONTRACEPTION
     Route: 015
     Dates: end: 20130729
  2. IBUPROFEN [Concomitant]
     Indication: PAIN

REACTIONS (3)
  - Device dislocation [Recovered/Resolved]
  - Metrorrhagia [Unknown]
  - Pain [Unknown]
